FAERS Safety Report 18278653 (Version 1)
Quarter: 2020Q3

REPORT INFORMATION
  Report Type: Spontaneous
  Country: US (occurrence: US)
  Receive Date: 20200917
  Receipt Date: 20200917
  Transmission Date: 20201103
  Serious: No
  Sender: FDA-Public Use
  Company Number: US-UPSHER-SMITH LABORATORIES, LLC-2019USL00808

PATIENT
  Sex: Female

DRUGS (3)
  1. BACLOFEN. [Suspect]
     Active Substance: BACLOFEN
     Indication: MUSCLE SPASMS
     Dosage: 20 MG, EVERY 6 HOURS
  2. BACLOFEN. [Suspect]
     Active Substance: BACLOFEN
     Dosage: 5 MG
  3. BACLOFEN. [Suspect]
     Active Substance: BACLOFEN
     Dosage: 20 MG, 3X/DAY

REACTIONS (3)
  - Intentional product use issue [Recovered/Resolved]
  - Pain [Unknown]
  - Therapeutic response shortened [Not Recovered/Not Resolved]
